FAERS Safety Report 5562848-X (Version None)
Quarter: 2007Q4

REPORT INFORMATION
  Report Type: 
  Country: None (occurrence: None)
  Receive Date: 20071217
  Receipt Date: 20071206
  Transmission Date: 20080405
  Serious: Yes (Hospitalization, Other)
  Sender: FDA-Public Use
  Company Number: IR-JNJFOC-20071110306

PATIENT
  Age: 24 Year
  Sex: Female
  Weight: 40 kg

DRUGS (2)
  1. REMICADE [Suspect]
     Indication: CROHN'S DISEASE
     Dosage: 3 INFUSIONS
     Route: 042
  2. AZATHIOPRINE SODIUM [Concomitant]
     Indication: CROHN'S DISEASE

REACTIONS (2)
  - PYREXIA [None]
  - TUBERCULOSIS [None]
